FAERS Safety Report 17288126 (Version 2)
Quarter: 2020Q1

REPORT INFORMATION
  Report Type: Spontaneous
  Country: US (occurrence: US)
  Receive Date: 20200120
  Receipt Date: 20200311
  Transmission Date: 20200409
  Serious: No
  Sender: FDA-Public Use
  Company Number: US-GILEAD-2020-0447284

PATIENT
  Age: 52 Year
  Sex: Female

DRUGS (6)
  1. AMITIZA [Concomitant]
     Active Substance: LUBIPROSTONE
  2. ONDANSETRON [Concomitant]
     Active Substance: ONDANSETRON
  3. ISOXSUPRINE HYDROCHLORIDE. [Concomitant]
     Active Substance: ISOXSUPRINE HYDROCHLORIDE
  4. SOFOSBUVIR;VELPATASVIR [Suspect]
     Active Substance: SOFOSBUVIR\VELPATASVIR
     Indication: CHRONIC HEPATITIS C
     Dosage: 1 DOSAGE FORM, QD
     Route: 048
     Dates: start: 202001
  5. OMEPRAZOLE. [Concomitant]
     Active Substance: OMEPRAZOLE
  6. MELATONIN [Concomitant]
     Active Substance: MELATONIN

REACTIONS (4)
  - Product storage error [Recovered/Resolved]
  - Headache [Not Recovered/Not Resolved]
  - Fatigue [Not Recovered/Not Resolved]
  - Diarrhoea [Unknown]

NARRATIVE: CASE EVENT DATE: 20200114
